FAERS Safety Report 5596094-0 (Version None)
Quarter: 2008Q1

REPORT INFORMATION
  Report Type: 
  Country: None (occurrence: None)
  Receive Date: 20080118
  Receipt Date: 20080109
  Transmission Date: 20080703
  Serious: Yes (Other)
  Sender: FDA-Public Use
  Company Number: BE-ABBOTT-08P-013-0431797-00

PATIENT
  Sex: Male

DRUGS (6)
  1. HUMIRA [Suspect]
     Indication: PSORIATIC ARTHROPATHY
     Route: 058
     Dates: start: 20060118
  2. PUVA THERAPY [Concomitant]
     Indication: PSORIASIS
  3. METHOTREXATE [Concomitant]
     Indication: PSORIASIS
  4. CORTICOIDS [Concomitant]
     Indication: PSORIASIS
  5. BISOPROLOL FUMARATE [Concomitant]
     Indication: DRUG USE FOR UNKNOWN INDICATION
  6. ASPIRIN [Concomitant]
     Indication: DRUG USE FOR UNKNOWN INDICATION

REACTIONS (2)
  - NEOPLASM [None]
  - SKIN ULCER [None]
